FAERS Safety Report 17047836 (Version 1)
Quarter: 2019Q4

REPORT INFORMATION
  Report Type: Spontaneous
  Country: US (occurrence: US)
  Receive Date: 20191119
  Receipt Date: 20191119
  Transmission Date: 20200122
  Serious: No
  Sender: FDA-Public Use
  Company Number: US-SCIEGEN PHARMACEUTICALS INC-2019SCISPO00364

PATIENT

DRUGS (1)
  1. ATORVASTATIN CALCIUM. [Suspect]
     Active Substance: ATORVASTATIN CALCIUM

REACTIONS (7)
  - Product use complaint [Unknown]
  - Product colour issue [Unknown]
  - Vomiting [Unknown]
  - Throat irritation [Unknown]
  - Reaction to colouring [Unknown]
  - Dyspepsia [Unknown]
  - Product size issue [Unknown]
